FAERS Safety Report 8167168-5 (Version None)
Quarter: 2012Q1

REPORT INFORMATION
  Report Type: 
  Country: None (occurrence: None)
  Receive Date: 20120227
  Receipt Date: 20120213
  Transmission Date: 20120608
  Serious: Yes (Disabling, Other)
  Sender: FDA-Public Use
  Company Number: JP-ELI_LILLY_AND_COMPANY-JP201201006690

PATIENT
  Age: 68 Year
  Sex: Male

DRUGS (2)
  1. NITRAZEPAM [Concomitant]
     Dosage: UNK
     Route: 048
  2. ZYPREXA [Suspect]
     Dosage: 2.5 MG, BID
     Route: 048
     Dates: start: 20080319

REACTIONS (1)
  - RETINAL ARTERY OCCLUSION [None]
